FAERS Safety Report 6032094-4 (Version None)
Quarter: 2009Q1

REPORT INFORMATION
  Report Type: 
  Country: None (occurrence: None)
  Receive Date: 20090108
  Receipt Date: 20051214
  Transmission Date: 20090719
  Serious: Yes (Other)
  Sender: FDA-Public Use
  Company Number: US-PFIZER INC-2008159857

PATIENT

DRUGS (19)
  1. CELECOXIB [Suspect]
     Indication: ADENOMATOUS POLYPOSIS COLI
     Dosage: 200 MG, 2X/DAY
     Route: 048
     Dates: start: 20010613, end: 20021001
  2. CELECOXIB [Suspect]
     Indication: POLYP
  3. ANUSOL HC [Concomitant]
     Dosage: UNK
     Dates: start: 20010405
  4. HYDROCHLOROTHIAZIDE [Concomitant]
     Dosage: UNK
     Dates: start: 20010906
  5. ZOLOFT [Concomitant]
     Dosage: UNK
  6. AMITRIPTYLINE [Concomitant]
     Dosage: UNK
  7. MELATONIN [Concomitant]
     Dosage: UNK
  8. ECHINACEA EXTRACT [Concomitant]
     Dosage: UNK
  9. VITAMIN E [Concomitant]
     Dosage: UNK
  10. CALCIUM [Concomitant]
     Dosage: UNK
  11. MAGNESIUM [Concomitant]
     Dosage: UNK
  12. ZINC [Concomitant]
     Dosage: UNK
  13. ASCORBIC ACID [Concomitant]
     Dosage: UNK
  14. ACETAMINOPHEN [Concomitant]
     Dosage: UNK
  15. NUTRITIONAL SUPPLEMENT [Concomitant]
     Dosage: UNK
  16. PHENYLPROPANOLAMINE [Concomitant]
  17. SPIRONOLACTONE [Concomitant]
     Dosage: UNK
     Dates: start: 20010907
  18. NEXIUM [Concomitant]
     Dosage: UNK
     Dates: start: 20011101
  19. ZANTAC [Concomitant]
     Dosage: UNK
     Dates: start: 20010901, end: 20011101

REACTIONS (1)
  - BREAST ENLARGEMENT [None]
